FAERS Safety Report 9006355 (Version 1)
Quarter: 2012Q4

REPORT INFORMATION
  Report Type: Spontaneous
  Country: DK (occurrence: None)
  Receive Date: 20121227
  Receipt Date: 20121227
  Transmission Date: 20130627
  Serious: Yes (Other)
  Sender: FDA-Public Use
  Company Number: 2012MA014227

PATIENT
  Age: 72 Year
  Sex: Male

DRUGS (8)
  1. RAMIPRIL [Suspect]
     Indication: DRUG USE FOR UNKNOWN INDICATION
  2. ATORVASTATIN (ATORVASTATIN) [Suspect]
     Indication: DRUG USE FOR UNKNOWN INDICATION
  3. TRIATEC [Suspect]
     Indication: DRUG USE FOR UNKNOWN INDICATION
  4. LEVAXIN [Concomitant]
  5. TROMBYL [Concomitant]
  6. METOPROLOL [Concomitant]
  7. METFORMIN [Concomitant]
  8. LIPITOR (ATORVASTATIN) [Suspect]

REACTIONS (3)
  - Cerebrovascular accident [None]
  - Product substitution issue [None]
  - Procedural complication [None]
